FAERS Safety Report 24908238 (Version 1)
Quarter: 2025Q1

REPORT INFORMATION
  Report Type: Report from Study
  Country: CN (occurrence: CN)
  Receive Date: 20250131
  Receipt Date: 20250131
  Transmission Date: 20250409
  Serious: Yes (Hospitalization, Other)
  Sender: NOVO NORDISK
  Company Number: CN-NOVOPROD-1355300

PATIENT
  Sex: Male
  Weight: 65 kg

DRUGS (1)
  1. NOVOEIGHT [Suspect]
     Active Substance: ANTIHEMOPHILIC FACTOR, HUMAN RECOMBINANT
     Indication: Factor VIII deficiency
     Dosage: 2000 IU, QD
     Route: 042
     Dates: start: 202501

REACTIONS (2)
  - Haemarthrosis [Unknown]
  - Injury [Unknown]

NARRATIVE: CASE EVENT DATE: 20250101
